FAERS Safety Report 7197422-5 (Version None)
Quarter: 2010Q4

REPORT INFORMATION
  Report Type: 
  Country: None (occurrence: None)
  Receive Date: 20101210
  Receipt Date: 20101206
  Transmission Date: 20110411
  Serious: Yes (Death, Hospitalization)
  Sender: FDA-Public Use
  Company Number: 2010SP063203

PATIENT
  Age: 37 Year
  Sex: Male

DRUGS (6)
  1. TEMODAL [Suspect]
     Dosage: PO, PO, PO
     Route: 048
     Dates: start: 20090818, end: 20090822
  2. TEMODAL [Suspect]
     Dosage: PO, PO, PO
     Route: 048
     Dates: start: 20090122
  3. TEMODAL [Suspect]
     Dosage: PO, PO, PO
     Route: 048
     Dates: start: 20090306
  4. BICNU [Suspect]
     Dosage: IV; IV; IV
     Route: 042
     Dates: start: 20090818, end: 20090818
  5. BICNU [Suspect]
     Dosage: IV; IV; IV
     Route: 042
     Dates: start: 20090122
  6. BICNU [Suspect]
     Dosage: IV; IV; IV
     Route: 042
     Dates: start: 20090306

REACTIONS (17)
  - ACUTE RESPIRATORY FAILURE [None]
  - ALANINE AMINOTRANSFERASE INCREASED [None]
  - ALOPECIA [None]
  - ASPARTATE AMINOTRANSFERASE INCREASED [None]
  - ASTHENIA [None]
  - BLOOD ALKALINE PHOSPHATASE DECREASED [None]
  - BLOOD PRESSURE ABNORMAL [None]
  - DERMATITIS [None]
  - GAMMA-GLUTAMYLTRANSFERASE INCREASED [None]
  - GENERAL PHYSICAL HEALTH DETERIORATION [None]
  - INFLAMMATION [None]
  - INTERSTITIAL LUNG DISEASE [None]
  - PLEURAL EFFUSION [None]
  - PNEUMOTHORAX [None]
  - RHINITIS [None]
  - STAPHYLOCOCCUS TEST POSITIVE [None]
  - STREPTOCOCCUS TEST POSITIVE [None]
